FAERS Safety Report 5241320-0 (Version None)
Quarter: 2007Q1

REPORT INFORMATION
  Report Type: 
  Country: None (occurrence: None)
  Receive Date: 20070220
  Receipt Date: 20070215
  Transmission Date: 20070707
  Serious: Yes (Other)
  Sender: FDA-Public Use
  Company Number: CA-JNJFOC-20070202999

PATIENT
  Sex: Female

DRUGS (4)
  1. TRAMACET [Suspect]
     Indication: TENSION HEADACHE
     Route: 065
  2. TORADOL [Concomitant]
     Indication: HEADACHE
     Route: 065
  3. AMITRIPTYLINE HCL [Concomitant]
     Indication: HEADACHE
  4. MOTRIN [Concomitant]
     Indication: HEADACHE

REACTIONS (3)
  - ANXIETY [None]
  - PARANOIA [None]
  - TEARFULNESS [None]
